FAERS Safety Report 7278872-5 (Version None)
Quarter: 2011Q1

REPORT INFORMATION
  Report Type: 
  Country: None (occurrence: None)
  Receive Date: 20110207
  Receipt Date: 20110201
  Transmission Date: 20110831
  Serious: Yes (Hospitalization, Other)
  Sender: FDA-Public Use
  Company Number: US-ABBOTT-11P-163-0702376-00

PATIENT
  Sex: Female
  Weight: 54.934 kg

DRUGS (3)
  1. DILAUDID [Suspect]
     Indication: PAIN
     Dates: start: 20100829, end: 20100902
  2. HUMIRA [Suspect]
     Indication: PSORIATIC ARTHROPATHY
     Dates: start: 20070101, end: 20100801
  3. HUMIRA [Suspect]
     Indication: RHEUMATOID ARTHRITIS
     Dates: start: 20030501, end: 20070101

REACTIONS (4)
  - FALL [None]
  - COMA [None]
  - HIP FRACTURE [None]
  - MUSCULAR WEAKNESS [None]
